FAERS Safety Report 5389643-9 (Version None)
Quarter: 2007Q3

REPORT INFORMATION
  Report Type: 
  Country: None (occurrence: None)
  Receive Date: 20070717
  Receipt Date: 20070703
  Transmission Date: 20080115
  Serious: Yes (Other)
  Sender: FDA-Public Use
  Company Number: US-SHR-US-2007-021119

PATIENT
  Age: 60 Year
  Sex: Male
  Weight: 66.213 kg

DRUGS (5)
  1. BETASERON [Suspect]
     Indication: RELAPSING-REMITTING MULTIPLE SCLEROSIS
     Dosage: 8 MIU, EVERY 2D
     Route: 058
     Dates: start: 20070301, end: 20070603
  2. DETROL [Concomitant]
  3. AMANTADINE HCL [Concomitant]
  4. XANAX [Concomitant]
  5. BUSPAR [Concomitant]

REACTIONS (3)
  - DECUBITUS ULCER [None]
  - INJECTION SITE NECROSIS [None]
  - INJECTION SITE ULCER [None]
